FAERS Safety Report 18862547 (Version 1)
Quarter: 2021Q1

REPORT INFORMATION
  Report Type: Spontaneous
  Country: US (occurrence: US)
  Receive Date: 20210209
  Receipt Date: 20210209
  Transmission Date: 20210420
  Serious: No
  Sender: FDA-Public Use
  Company Number: US-PURDUE PHARMA-USA-2020-0163012

PATIENT
  Sex: Female

DRUGS (1)
  1. BUTRANS [Suspect]
     Active Substance: BUPRENORPHINE
     Indication: PAIN
     Dosage: 15 MCG/HR, WEEKLY
     Route: 062
     Dates: start: 202003

REACTIONS (8)
  - Product adhesion issue [Unknown]
  - Illness [Unknown]
  - Chills [Unknown]
  - Drug ineffective [Unknown]
  - Nausea [Unknown]
  - Inadequate analgesia [Unknown]
  - Withdrawal syndrome [Unknown]
  - Hyperhidrosis [Unknown]
